FAERS Safety Report 9628047 (Version 1)
Quarter: 2013Q4

REPORT INFORMATION
  Report Type: Spontaneous
  Country: US (occurrence: US)
  Receive Date: 20131016
  Receipt Date: 20131016
  Transmission Date: 20140711
  Serious: No
  Sender: FDA-Public Use
  Company Number: US-009507513-1310USA005628

PATIENT
  Age: 60 Year
  Sex: Female

DRUGS (1)
  1. COZAAR [Suspect]
     Dosage: UNK
     Route: 048
     Dates: start: 201209

REACTIONS (2)
  - Myalgia [Unknown]
  - Arthralgia [Unknown]
